FAERS Safety Report 10666059 (Version 2)
Quarter: 2015Q2

REPORT INFORMATION
  Report Type: Spontaneous
  Country: US (occurrence: US)
  Receive Date: 20141219
  Receipt Date: 20150406
  Transmission Date: 20150821
  Serious: Yes (Hospitalization, Other)
  Sender: FDA-Public Use
  Company Number: US-ELI_LILLY_AND_COMPANY-US201412006319

PATIENT
  Age: 87 Year
  Sex: Female

DRUGS (3)
  1. HUMALOG [Suspect]
     Active Substance: INSULIN LISPRO
     Indication: DIABETES MELLITUS
     Dosage: UNK UNK, QD
     Route: 065
     Dates: start: 2013
  2. HUMALOG [Suspect]
     Active Substance: INSULIN LISPRO
     Dosage: UNK, QD
     Route: 065
     Dates: start: 2013
  3. LANTUS [Concomitant]
     Active Substance: INSULIN GLARGINE

REACTIONS (8)
  - Hypoacusis [Not Recovered/Not Resolved]
  - Fibromyalgia [Unknown]
  - Heart rate increased [Unknown]
  - Memory impairment [Unknown]
  - Pain [Unknown]
  - Spinal compression fracture [Unknown]
  - Musculoskeletal disorder [Unknown]
  - Mobility decreased [Not Recovered/Not Resolved]

NARRATIVE: CASE EVENT DATE: 201312
